FAERS Safety Report 11820339 (Version 1)
Quarter: 2015Q4

REPORT INFORMATION
  Report Type: Spontaneous
  Country: US (occurrence: US)
  Receive Date: 20151210
  Receipt Date: 20151210
  Transmission Date: 20160305
  Serious: Yes (Other)
  Sender: FDA-Public Use
  Company Number: US-BEH-2015056442

PATIENT
  Sex: Female
  Weight: 60 kg

DRUGS (24)
  1. DIGITEK [Concomitant]
     Active Substance: DIGOXIN
  2. DIPHENHYDRAMINE. [Concomitant]
     Active Substance: DIPHENHYDRAMINE
  3. SYMBICORT [Concomitant]
     Active Substance: BUDESONIDE\FORMOTEROL FUMARATE DIHYDRATE
  4. MAGNESIUM [Concomitant]
     Active Substance: MAGNESIUM
  5. EPIPEN [Concomitant]
     Active Substance: EPINEPHRINE
  6. DALIRESP [Concomitant]
     Active Substance: ROFLUMILAST
  7. PREDNISONE. [Concomitant]
     Active Substance: PREDNISONE
  8. LEVOTHYROXINE SODIUM. [Concomitant]
     Active Substance: LEVOTHYROXINE SODIUM
  9. ACETAMINOPHEN. [Concomitant]
     Active Substance: ACETAMINOPHEN
  10. ASPIRIN. [Concomitant]
     Active Substance: ASPIRIN
  11. TRAMADOL HYDROCHLORIDE. [Concomitant]
     Active Substance: TRAMADOL HYDROCHLORIDE
  12. TUSSIONEX PENNKINETIC [Concomitant]
     Active Substance: CHLORPHENIRAMINE\HYDROCODONE
  13. BIOTIN [Concomitant]
     Active Substance: BIOTIN
  14. XOPENEX [Concomitant]
     Active Substance: LEVALBUTEROL HYDROCHLORIDE
  15. OXYGEN. [Concomitant]
     Active Substance: OXYGEN
  16. LORAZEPAM. [Concomitant]
     Active Substance: LORAZEPAM
  17. TRAZODONE [Concomitant]
     Active Substance: TRAZODONE HYDROCHLORIDE
  18. HIZENTRA [Suspect]
     Active Substance: HUMAN IMMUNOGLOBULIN G
     Dosage: 4 GM 20 ML VIAL
     Route: 058
     Dates: start: 20151014
  19. SINGULAIR [Concomitant]
     Active Substance: MONTELUKAST SODIUM
  20. DILTIAZEM HCL [Concomitant]
     Active Substance: DILTIAZEM HYDROCHLORIDE
  21. CALCIUM +D [Concomitant]
     Active Substance: CALCIUM\VITAMIN D
  22. LIDOCAINE. [Concomitant]
     Active Substance: LIDOCAINE
  23. PROBIOTIC [Concomitant]
     Active Substance: PROBIOTICS NOS
  24. HIZENTRA [Suspect]
     Active Substance: HUMAN IMMUNOGLOBULIN G
     Indication: IMMUNODEFICIENCY COMMON VARIABLE
     Dosage: 2 GM 10 ML VIAL
     Route: 058
     Dates: start: 20151014

REACTIONS (1)
  - Lung infection [Unknown]
